FAERS Safety Report 8962218 (Version 2)
Quarter: 2013Q1

REPORT INFORMATION
  Report Type: Spontaneous
  Country: US (occurrence: US)
  Receive Date: 20121211
  Receipt Date: 20130114
  Transmission Date: 20140127
  Serious: No
  Sender: FDA-Public Use
  Company Number: US-009507513-1212USA001950

PATIENT
  Age: 48 Year
  Sex: Female

DRUGS (6)
  1. AZASITE [Suspect]
     Indication: BLEPHARITIS
     Dosage: 2 DF, BID
     Route: 047
     Dates: start: 20121129, end: 20121130
  2. TRAMADOL HYDROCHLORIDE [Concomitant]
  3. WELLBUTRIN [Concomitant]
  4. DICLOFENAC [Concomitant]
  5. SIMVASTATIN [Concomitant]
  6. HORMONAL CONTRACEPTIVES (UNSPECIFIED) [Concomitant]

REACTIONS (3)
  - Eye burns [Recovered/Resolved]
  - Drug dose omission [Unknown]
  - Product quality issue [Unknown]
